FAERS Safety Report 8608487-5 (Version None)
Quarter: 2012Q3

REPORT INFORMATION
  Report Type: 
  Country: None (occurrence: None)
  Receive Date: 20120821
  Receipt Date: 20120816
  Transmission Date: 20120928
  Serious: Yes (Other)
  Sender: FDA-Public Use
  Company Number: US-BAYER-2012-085249

PATIENT
  Age: 37 Year
  Sex: Female
  Weight: 54 kg

DRUGS (1)
  1. ALEVE (CAPLET) [Suspect]
     Indication: PRODUCT USED FOR UNKNOWN INDICATION
     Dosage: UNK
     Route: 048

REACTIONS (7)
  - EYE SWELLING [None]
  - RASH PAPULAR [None]
  - ANAL PRURITUS [None]
  - HAEMORRHOIDAL HAEMORRHAGE [None]
  - PRURITUS [None]
  - HAEMORRHOIDS [None]
  - LIP SWELLING [None]
